FAERS Safety Report 18489218 (Version 1)
Quarter: 2020Q4

REPORT INFORMATION
  Report Type: Spontaneous
  Country: US (occurrence: US)
  Receive Date: 20201111
  Receipt Date: 20201111
  Transmission Date: 20210114
  Serious: No
  Sender: FDA-Public Use
  Company Number: US-SA-2020SA315981

PATIENT

DRUGS (1)
  1. KEVZARA [Suspect]
     Active Substance: SARILUMAB
     Dosage: DRUG STRUCTURE DOSAGE :   NA  DRUG INTERVAL DOSAGE :   NA

REACTIONS (1)
  - Product storage error [Unknown]
